FAERS Safety Report 18313261 (Version 1)
Quarter: 2020Q3

REPORT INFORMATION
  Report Type: Spontaneous
  Country: ES (occurrence: ES)
  Receive Date: 20200925
  Receipt Date: 20200925
  Transmission Date: 20201103
  Serious: Yes (Death, Hospitalization)
  Sender: FDA-Public Use
  Company Number: ES-CADILA HEALTHCARE LIMITED-ES-ZYDUS-027322

PATIENT

DRUGS (9)
  1. PARACETAMOL [Suspect]
     Active Substance: ACETAMINOPHEN
     Indication: PRODUCT USED FOR UNKNOWN INDICATION
     Dosage: 1 GR EVERY 8 HOURS
     Dates: start: 20170312, end: 20170314
  2. OMEPRAZOLE. [Suspect]
     Active Substance: OMEPRAZOLE
     Dosage: 20 MG EVERY 24 HOURS
     Dates: start: 20170313, end: 20170314
  3. RISPERIDONE. [Concomitant]
     Active Substance: RISPERIDONE
     Dosage: 0.5 MG IF NEEDED
     Dates: start: 20170312, end: 20170313
  4. BEMIPARIN [Concomitant]
     Active Substance: BEMIPARIN
     Dosage: 7500 IU EVERY 24 HOURS
     Dates: start: 20170312, end: 20170313
  5. PIPERACILLIN AND TAZOBACTAM [Suspect]
     Active Substance: PIPERACILLIN SODIUM\TAZOBACTAM SODIUM
     Indication: PRODUCT USED FOR UNKNOWN INDICATION
     Dosage: 4 GR EVERY 6 HOURS
     Dates: start: 20170312, end: 20170314
  6. FENTANILA [Concomitant]
     Dosage: 1 UNIT
     Route: 062
     Dates: start: 20170312, end: 20170316
  7. OLANZAPINE. [Suspect]
     Active Substance: OLANZAPINE
     Indication: PRODUCT USED FOR UNKNOWN INDICATION
     Dosage: 2.5 MG IF NEEDED
     Dates: start: 20170312, end: 20170314
  8. QUETIAPINE. [Concomitant]
     Active Substance: QUETIAPINE
     Dosage: 50 MG EVERY 12 HOURS
     Dates: start: 20170312, end: 20170313
  9. PREGABALIN. [Concomitant]
     Active Substance: PREGABALIN
     Dosage: 75 MG EVERY 12 HOURS
     Dates: start: 20170312, end: 20170313

REACTIONS (1)
  - Hepatic failure [Fatal]

NARRATIVE: CASE EVENT DATE: 20170313
